FAERS Safety Report 4579249-3 (Version None)
Quarter: 2005Q1

REPORT INFORMATION
  Report Type: 
  Country: None (occurrence: None)
  Receive Date: 20050209
  Receipt Date: 20050209
  Transmission Date: 20050727
  Serious: Yes (Other)
  Sender: FDA-Public Use
  Company Number: None

PATIENT
  Age: 45 Year
  Sex: Female
  Weight: 91.173 kg

DRUGS (2)
  1. FLUOXETINE [Suspect]
     Indication: PAIN MANAGEMENT
     Dosage: 1 PILL 3XD
  2. FLUOXETINE [Suspect]
     Indication: PAIN MANAGEMENT
     Dosage: 1 PILL 3XD

REACTIONS (2)
  - MEDICATION ERROR [None]
  - PHARMACEUTICAL PRODUCT COMPLAINT [None]
